FAERS Safety Report 9787879 (Version 1)
Quarter: 2013Q4

REPORT INFORMATION
  Report Type: Spontaneous
  Country: US (occurrence: US)
  Receive Date: 20131230
  Receipt Date: 20131230
  Transmission Date: 20140711
  Serious: No
  Sender: FDA-Public Use
  Company Number: US-BAYER-2013-158534

PATIENT
  Sex: Female

DRUGS (3)
  1. ALEVE CAPLET [Suspect]
     Dosage: UNK
  2. VICODIN [Suspect]
  3. IBUPROFEN [Suspect]

REACTIONS (1)
  - Drug ineffective [None]
